FAERS Safety Report 11509552 (Version 1)
Quarter: 2015Q3

REPORT INFORMATION
  Report Type: Spontaneous
  Country: US (occurrence: US)
  Receive Date: 20150915
  Receipt Date: 20150915
  Transmission Date: 20151125
  Serious: No
  Sender: FDA-Public Use
  Company Number: US-JNJFOC-20150610893

PATIENT
  Age: 79 Year
  Sex: Female
  Weight: 77.57 kg

DRUGS (1)
  1. TYLENOL EXTRA STRENGTH [Suspect]
     Active Substance: ACETAMINOPHEN
     Indication: BACK PAIN
     Dosage: 1-2 CAPLETS AND UP TO 6 CAPLETS PER DAY
     Route: 048

REACTIONS (3)
  - Off label use [Unknown]
  - Product container issue [Unknown]
  - Drug ineffective for unapproved indication [Unknown]
